FAERS Safety Report 11856093 (Version 1)
Quarter: 2015Q4

REPORT INFORMATION
  Report Type: Report from Study
  Country: US (occurrence: US)
  Receive Date: 20151221
  Receipt Date: 20151221
  Transmission Date: 20160305
  Serious: No
  Sender: FDA-Public Use
  Company Number: US-CELGENEUS-USA-2015115109

PATIENT
  Sex: Male

DRUGS (5)
  1. THALOMID [Suspect]
     Active Substance: THALIDOMIDE
     Indication: PRODUCT USED FOR UNKNOWN INDICATION
     Route: 048
  2. CYCLOPHOSPHAMIDE. [Concomitant]
     Active Substance: CYCLOPHOSPHAMIDE
     Indication: PRODUCT USED FOR UNKNOWN INDICATION
     Route: 065
  3. DEXAMETHASONE. [Concomitant]
     Active Substance: DEXAMETHASONE
     Indication: PRODUCT USED FOR UNKNOWN INDICATION
     Route: 065
  4. TO THIN BLOOD [Concomitant]
     Indication: ANTICOAGULANT THERAPY
     Route: 050
  5. THALOMID [Suspect]
     Active Substance: THALIDOMIDE
     Route: 048

REACTIONS (5)
  - Chest pain [Unknown]
  - Lower respiratory tract infection [Recovering/Resolving]
  - Back pain [Unknown]
  - Pain [Unknown]
  - Malaise [Unknown]
